FAERS Safety Report 5738018-9 (Version None)
Quarter: 2008Q2

REPORT INFORMATION
  Report Type: 
  Country: None (occurrence: None)
  Receive Date: 20080508
  Receipt Date: 20080220
  Transmission Date: 20081010
  Serious: Yes (Other)
  Sender: FDA-Public Use
  Company Number: 45412

PATIENT
  Age: 75 Year
  Sex: Male

DRUGS (1)
  1. MITOMYCIN [Suspect]
     Indication: BLADDER CANCER
     Dosage: BLADDER IRRIGATION
     Dates: start: 20071001

REACTIONS (3)
  - BURNING SENSATION [None]
  - PARAESTHESIA [None]
  - ULCER [None]
